FAERS Safety Report 4354569-6 (Version None)
Quarter: 2004Q2

REPORT INFORMATION
  Report Type: 
  Country: None (occurrence: None)
  Receive Date: 20040506
  Receipt Date: 20040506
  Transmission Date: 20050107
  Serious: No
  Sender: FDA-Public Use
  Company Number: None

PATIENT
  Sex: Male
  Weight: 89.4947 kg

DRUGS (14)
  1. FOSINOPRIL SODIUM [Suspect]
     Indication: HYPERTENSION
     Dosage: 10MG BID ORAL
     Route: 048
     Dates: start: 20000701, end: 20040202
  2. HYDROXYPROPYL METHYLCELL [Concomitant]
  3. ALBUTEROL [Concomitant]
  4. FLUTICASONE PROPIONATE [Concomitant]
  5. IPRATROPIUM BROMIDE [Concomitant]
  6. IRBESARTAN [Concomitant]
  7. SIMVASTATIN [Concomitant]
  8. TERAZOSIN HCL [Concomitant]
  9. FORMOTEROL FUMARATE [Concomitant]
  10. CETIRIZINE HCL [Concomitant]
  11. SILDENAFIL CITRATE [Concomitant]
  12. ALBUTEROL [Concomitant]
  13. METOPROLOL TARTRATE [Concomitant]
  14. RANITIDINE HCL [Concomitant]

REACTIONS (2)
  - BLOOD POTASSIUM INCREASED [None]
  - CHRONIC OBSTRUCTIVE AIRWAYS DISEASE EXACERBATED [None]
